FAERS Safety Report 8988889 (Version 2)
Quarter: 2013Q1

REPORT INFORMATION
  Report Type: Spontaneous
  Country: DE (occurrence: DE)
  Receive Date: 20121228
  Receipt Date: 20130123
  Transmission Date: 20140127
  Serious: Yes (Other)
  Sender: FDA-Public Use
  Company Number: DE-RANBAXY-2012RR-63593

PATIENT
  Sex: Female
  Weight: 77 kg

DRUGS (6)
  1. ATORVASTATIN [Suspect]
     Indication: MUSCLE SPASMS
     Dosage: 1 DF/DAY
     Route: 048
     Dates: start: 201205
  2. FLUVASTATIN [Suspect]
     Indication: MYALGIA
     Dosage: UNK
     Route: 048
     Dates: start: 201109
  3. INEGY [Suspect]
     Indication: MYALGIA
     Dosage: 1 DF/DAY
     Route: 048
     Dates: start: 201108
  4. BEZAFIBRATE [Suspect]
     Indication: MUSCLE SPASMS
     Dosage: 1 DF/DAY
     Route: 048
     Dates: start: 201204
  5. TREDAPTIVE [Suspect]
     Indication: ABDOMINAL PAIN UPPER
     Dosage: 1 DF/DAY
     Route: 048
     Dates: start: 201209
  6. EZETROL [Suspect]
     Indication: ABDOMINAL PAIN UPPER
     Dosage: 1 DF/DAY
     Route: 048
     Dates: start: 201209

REACTIONS (2)
  - Gastrointestinal disorder [Recovered/Resolved]
  - Musculoskeletal discomfort [Recovered/Resolved]
